FAERS Safety Report 16405551 (Version 1)
Quarter: 2019Q2

REPORT INFORMATION
  Report Type: Spontaneous
  Country: KR (occurrence: KR)
  Receive Date: 20190607
  Receipt Date: 20190607
  Transmission Date: 20190711
  Serious: Yes (Death, Hospitalization, Other)
  Sender: FDA-Public Use
  Company Number: KR-009507513-1906KOR001006

PATIENT
  Sex: Female

DRUGS (7)
  1. ALBUMIN HUMAN [Concomitant]
     Active Substance: ALBUMIN HUMAN
     Dosage: QUANTITY: 1, DAYS: 1
     Dates: start: 20190502, end: 20190502
  2. RUKASYN [Concomitant]
     Dosage: QUANTITY: 4, DAYS: 11
     Dates: start: 20190427, end: 20190507
  3. SODIUM CHLORIDE. [Concomitant]
     Active Substance: SODIUM CHLORIDE
     Dosage: QUANTITY: 4, DAYS: 11
     Dates: start: 20190427, end: 20190507
  4. MORPHINE SULFATE. [Concomitant]
     Active Substance: MORPHINE SULFATE
     Dosage: QUANTITY: 2, DAYS: 34
     Dates: start: 20190504, end: 20190516
  5. MORPHINE SULFATE. [Concomitant]
     Active Substance: MORPHINE SULFATE
     Dosage: QUANTITY: 3, DAYS: 22
     Dates: start: 20190427, end: 20190507
  6. WATER, DISTILLED [Concomitant]
     Indication: IRRIGATION THERAPY
     Dosage: STRENGTH: 9G/1000ML; QUANTITY 1, DAYS 3
     Dates: start: 20190507, end: 20190508
  7. KEYTRUDA [Suspect]
     Active Substance: PEMBROLIZUMAB
     Indication: GALLBLADDER CANCER
     Dosage: QUANTITY: 2, DAYS: 1
     Dates: start: 20190509, end: 20190509

REACTIONS (3)
  - Death [Fatal]
  - Adverse event [Unknown]
  - Product use in unapproved indication [Unknown]

NARRATIVE: CASE EVENT DATE: 2019
